FAERS Safety Report 4690324-5 (Version None)
Quarter: 2005Q2

REPORT INFORMATION
  Report Type: 
  Country: None (occurrence: None)
  Receive Date: 20050615
  Receipt Date: 20050310
  Transmission Date: 20051028
  Serious: Yes (Hospitalization)
  Sender: FDA-Public Use
  Company Number: US-MERCK-0503USA02283

PATIENT
  Age: 46 Year
  Sex: Female
  Weight: 84 kg

DRUGS (7)
  1. ZOCOR [Concomitant]
     Route: 048
     Dates: start: 20010525, end: 20040201
  2. LEVOXYL [Concomitant]
     Indication: THYROID DISORDER
     Route: 065
  3. TYLENOL [Concomitant]
     Route: 065
  4. VIOXX [Suspect]
     Indication: ARTHRITIS
     Route: 048
     Dates: start: 20010525, end: 20040201
  5. VIOXX [Suspect]
     Route: 048
     Dates: start: 20010525, end: 20040201
  6. VIOXX [Suspect]
     Indication: TENDON DISORDER
     Route: 048
     Dates: start: 20010525, end: 20040201
  7. VIOXX [Suspect]
     Route: 048
     Dates: start: 20010525, end: 20040201

REACTIONS (18)
  - ANGINA UNSTABLE [None]
  - ATHEROSCLEROSIS [None]
  - CHOLECYSTECTOMY [None]
  - CONGESTIVE CARDIOMYOPATHY [None]
  - CORONARY ARTERY DISEASE [None]
  - CORONARY ARTERY OCCLUSION [None]
  - CORONARY ARTERY STENOSIS [None]
  - DIASTOLIC DYSFUNCTION [None]
  - DYSPNOEA [None]
  - EJECTION FRACTION DECREASED [None]
  - EMOTIONAL DISTRESS [None]
  - GASTROINTESTINAL DISORDER [None]
  - GASTROOESOPHAGEAL REFLUX DISEASE [None]
  - ISCHAEMIC CARDIOMYOPATHY [None]
  - MYOCARDIAL INFARCTION [None]
  - SUDDEN DEATH [None]
  - TACHYARRHYTHMIA [None]
  - VENTRICULAR TACHYCARDIA [None]
